FAERS Safety Report 4947249-7 (Version None)
Quarter: 2006Q1

REPORT INFORMATION
  Report Type: 
  Country: None (occurrence: None)
  Receive Date: 20060314
  Receipt Date: 20060228
  Transmission Date: 20060701
  Serious: No
  Sender: FDA-Public Use
  Company Number: T200600008

PATIENT
  Age: 61 Year
  Sex: Female
  Weight: 52.2 kg

DRUGS (6)
  1. TOFRANIL [Suspect]
     Indication: BLADDER DISORDER
     Dosage: 25 MG, QD, ORAL
     Route: 048
     Dates: start: 20000101, end: 20060228
  2. ACTONEL [Concomitant]
  3. ALEVE   /000256202/ (NAPROXEN SODIUM) [Concomitant]
  4. VITAMINS [Concomitant]
  5. ZOCOR [Concomitant]
  6. LIPITOR [Concomitant]

REACTIONS (8)
  - ASTHENIA [None]
  - DIZZINESS [None]
  - ERYTHEMA [None]
  - FEELING HOT [None]
  - GLAUCOMA [None]
  - HEART RATE INCREASED [None]
  - HYPERHIDROSIS [None]
  - OSTEOPENIA [None]
